FAERS Safety Report 5839107-0 (Version None)
Quarter: 2008Q3

REPORT INFORMATION
  Report Type: 
  Country: None (occurrence: None)
  Receive Date: 20080808
  Receipt Date: 20080728
  Transmission Date: 20090109
  Serious: Yes (Disabling, Other)
  Sender: FDA-Public Use
  Company Number: JP-PFIZER INC-2008056953

PATIENT
  Sex: Female
  Weight: 43.8 kg

DRUGS (10)
  1. CHANTIX [Suspect]
     Indication: SMOKING CESSATION THERAPY
     Dosage: DAILY DOSE:1MG
     Route: 048
     Dates: start: 20080607, end: 20080703
  2. THEOPHYLLINE [Concomitant]
     Route: 048
  3. ANPLAG [Concomitant]
     Route: 048
  4. MUCODYNE [Concomitant]
     Route: 048
  5. NORVASC [Concomitant]
     Route: 048
  6. ALL OTHER THERAPEUTIC PRODUCTS [Concomitant]
     Route: 048
  7. ETHYL ICOSAPENTATE [Concomitant]
     Route: 048
  8. PURSENNID [Concomitant]
     Route: 048
  9. PRAVASTATIN SODIUM [Concomitant]
     Route: 048
  10. LANSOPRAZOLE [Concomitant]
     Route: 048

REACTIONS (11)
  - ABDOMINAL DISCOMFORT [None]
  - ABDOMINAL DISTENSION [None]
  - ABDOMINAL PAIN UPPER [None]
  - ACTIVITIES OF DAILY LIVING IMPAIRED [None]
  - DEMENTIA [None]
  - DYSGEUSIA [None]
  - GASTROENTERITIS [None]
  - LOSS OF CONTROL OF LEGS [None]
  - MENTAL DISORDER [None]
  - PAIN [None]
  - SLEEP DISORDER [None]
